FAERS Safety Report 24280440 (Version 1)
Quarter: 2024Q3

REPORT INFORMATION
  Report Type: Report from Study
  Country: US (occurrence: None)
  Receive Date: 20240904
  Receipt Date: 20240904
  Transmission Date: 20241016
  Serious: Yes (Other)
  Sender: ASTRAZENECA
  Company Number: 2024A196583

PATIENT
  Age: 618 Month
  Sex: Female
  Weight: 93.9 kg

DRUGS (1)
  1. FASENRA [Suspect]
     Active Substance: BENRALIZUMAB
     Indication: Asthma
     Route: 058
     Dates: start: 202304

REACTIONS (1)
  - Shoulder fracture [Recovering/Resolving]

NARRATIVE: CASE EVENT DATE: 20240201
